FAERS Safety Report 7271897-5 (Version None)
Quarter: 2011Q1

REPORT INFORMATION
  Report Type: 
  Country: None (occurrence: None)
  Receive Date: 20110131
  Receipt Date: 20110131
  Transmission Date: 20110831
  Serious: Yes (Hospitalization)
  Sender: FDA-Public Use
  Company Number: None

PATIENT
  Age: 72 Year
  Sex: Female
  Weight: 73.0291 kg

DRUGS (6)
  1. ATIVAN [Concomitant]
  2. HYDROXYCHLOROQUINE [Suspect]
     Dosage: 800MG
     Dates: start: 20101217, end: 20110111
  3. GUAIFENESIN AC [Concomitant]
  4. NYSTATIN SWISH AND SWALLOW [Concomitant]
  5. TARCEVA [Suspect]
     Indication: NON-SMALL CELL LUNG CANCER
     Dosage: 150 MG
     Dates: start: 20101217, end: 20110111
  6. METFORMIN [Concomitant]

REACTIONS (4)
  - DYSPHONIA [None]
  - DYSPHAGIA [None]
  - PNEUMOTHORAX [None]
  - SUBCUTANEOUS EMPHYSEMA [None]
